FAERS Safety Report 7312666-7 (Version None)
Quarter: 2011Q1

REPORT INFORMATION
  Report Type: 
  Country: None (occurrence: None)
  Receive Date: 20110224
  Receipt Date: 20110111
  Transmission Date: 20110831
  Serious: No
  Sender: FDA-Public Use
  Company Number: US-ASTRAZENECA-2011SE02198

PATIENT
  Age: 68 Year
  Sex: Female

DRUGS (8)
  1. NORVASC [Concomitant]
  2. AGGRENOX [Concomitant]
  3. METOPROLOL SUCCINATE [Concomitant]
  4. LISINOPRIL [Concomitant]
  5. CRESTOR [Concomitant]
  6. LYRICA [Concomitant]
  7. VIMOVO [Suspect]
     Indication: BACK PAIN
     Dosage: 500 MG/20 MG DAILY
     Route: 048
     Dates: start: 20101213, end: 20101221
  8. CALCIUM [Concomitant]

REACTIONS (3)
  - RENAL FUNCTION TEST ABNORMAL [None]
  - DEHYDRATION [None]
  - LOSS OF CONSCIOUSNESS [None]
